FAERS Safety Report 8532270 (Version 3)
Quarter: 2013Q2

REPORT INFORMATION
  Report Type: Spontaneous
  Country: CA (occurrence: CA)
  Receive Date: 20120426
  Receipt Date: 20130429
  Transmission Date: 20140414
  Serious: Yes (Hospitalization, Other)
  Sender: FDA-Public Use
  Company Number: CA-JNJFOC-20120407945

PATIENT
  Age: 43 Year
  Sex: Male
  Weight: 93 kg

DRUGS (7)
  1. REMICADE [Suspect]
     Indication: PSORIASIS
     Route: 042
     Dates: start: 20090602
  2. REMICADE [Suspect]
     Indication: PSORIASIS
     Route: 042
     Dates: start: 20121221
  3. REMICADE [Suspect]
     Indication: PSORIASIS
     Route: 042
     Dates: start: 2012
  4. PERCOCET [Concomitant]
     Dosage: DOSE: 35/325 MG
     Route: 048
  5. HYDROMORPHONE [Concomitant]
     Route: 048
  6. LAXATIVE [Concomitant]
     Route: 048
  7. ALL OTHER THERAPEUTICS [Concomitant]
     Route: 048

REACTIONS (5)
  - Road traffic accident [Recovering/Resolving]
  - Psoriasis [Recovering/Resolving]
  - Lower limb fracture [Recovering/Resolving]
  - Swelling [Recovering/Resolving]
  - Contusion [Recovering/Resolving]
